FAERS Safety Report 8168317-5 (Version None)
Quarter: 2012Q1

REPORT INFORMATION
  Report Type: 
  Country: None (occurrence: None)
  Receive Date: 20120103
  Receipt Date: 20111104
  Transmission Date: 20120608
  Serious: No
  Sender: FDA-Public Use
  Company Number: AE-2011-003095

PATIENT
  Age: 55 Year
  Sex: Female
  Weight: 63.5036 kg

DRUGS (4)
  1. INTERFERON (PEGINTERFERON ALFA-2A) [Concomitant]
  2. CIPRO [Concomitant]
  3. INCIVEK [Suspect]
     Dosage: 2250 MG (750 MG, 3 IN 1 D), ORAL
     Route: 048
     Dates: start: 20111021
  4. RIBAVIRIN [Concomitant]

REACTIONS (1)
  - PRURITUS GENERALISED [None]
